FAERS Safety Report 19916970 (Version 2)
Quarter: 2021Q4

REPORT INFORMATION
  Report Type: Report from Study
  Country: US (occurrence: US)
  Receive Date: 20211005
  Receipt Date: 20211210
  Transmission Date: 20220303
  Serious: Yes (Hospitalization, Other)
  Sender: FDA-Public Use
  Company Number: US-ABBVIE-21K-163-4105631-00

PATIENT
  Sex: Female
  Weight: 88.076 kg

DRUGS (19)
  1. RINVOQ [Suspect]
     Active Substance: UPADACITINIB
     Indication: Rheumatoid arthritis
     Route: 048
     Dates: start: 202012, end: 2021
  2. RINVOQ [Suspect]
     Active Substance: UPADACITINIB
     Route: 048
     Dates: start: 202103
  3. GABAPENTIN [Concomitant]
     Active Substance: GABAPENTIN
     Indication: Pain
  4. DILTIAZEM [Concomitant]
     Active Substance: DILTIAZEM
     Indication: Heart rate increased
  5. HYDROXYZINE [Concomitant]
     Active Substance: HYDROXYZINE HYDROCHLORIDE
     Indication: Pruritus
  6. HYDROXYZINE [Concomitant]
     Active Substance: HYDROXYZINE HYDROCHLORIDE
     Indication: Pruritus
  7. ROSUVASTATIN [Concomitant]
     Active Substance: ROSUVASTATIN
     Indication: Blood cholesterol increased
  8. BUPROPION [Concomitant]
     Active Substance: BUPROPION
     Indication: Anxiety
  9. CYMBALTA [Concomitant]
     Active Substance: DULOXETINE HYDROCHLORIDE
     Indication: Pain
  10. PREDNISONE [Concomitant]
     Active Substance: PREDNISONE
     Indication: Pain
  11. PREDNISONE [Concomitant]
     Active Substance: PREDNISONE
     Indication: Inflammation
  12. LANSOPRAZOLE [Concomitant]
     Active Substance: LANSOPRAZOLE
     Indication: Gastrooesophageal reflux disease
  13. ARIPIPRAZOLE [Concomitant]
     Active Substance: ARIPIPRAZOLE
     Indication: Product used for unknown indication
  14. LASIX [Concomitant]
     Active Substance: FUROSEMIDE
     Indication: Oedema
  15. KLOR-CON [Concomitant]
     Active Substance: POTASSIUM CHLORIDE
     Indication: Electrolyte substitution therapy
  16. HYDROCODONE [Concomitant]
     Active Substance: HYDROCODONE
     Indication: Pain
  17. MODERNA COVID-19 VACCINE [Concomitant]
     Active Substance: ELASOMERAN
     Indication: COVID-19 immunisation
     Route: 030
     Dates: start: 20210412, end: 20210412
  18. MODERNA COVID-19 VACCINE [Concomitant]
     Active Substance: ELASOMERAN
     Route: 030
     Dates: start: 20210506, end: 20210506
  19. MODERNA COVID-19 VACCINE [Concomitant]
     Active Substance: ELASOMERAN
     Route: 030
     Dates: start: 20210826, end: 20210826

REACTIONS (12)
  - Joint dislocation [Recovered/Resolved]
  - Arthropathy [Recovered/Resolved]
  - Staphylococcal infection [Unknown]
  - Staphylococcal infection [Recovered/Resolved]
  - COVID-19 [Recovered/Resolved]
  - Loss of consciousness [Recovered/Resolved]
  - Illness [Recovered/Resolved]
  - Coma [Recovered/Resolved]
  - Haemorrhage [Recovered/Resolved]
  - Immunosuppression [Not Recovered/Not Resolved]
  - Amnesia [Not Recovered/Not Resolved]
  - Unevaluable event [Recovered/Resolved]

NARRATIVE: CASE EVENT DATE: 20200101
